FAERS Safety Report 9090584 (Version 1)
Quarter: 2013Q1

REPORT INFORMATION
  Report Type: Spontaneous
  Country: US (occurrence: US)
  Receive Date: 20130131
  Receipt Date: 20130131
  Transmission Date: 20140127
  Serious: Yes (Other)
  Sender: FDA-Public Use
  Company Number: US-BAYER-2013-009287

PATIENT
  Sex: Female

DRUGS (1)
  1. BAYER ASPIRIN REGIMEN ADULT LOW STRENGTH [Suspect]
     Route: 048

REACTIONS (2)
  - Gastrointestinal ulcer [None]
  - Gastrointestinal disorder [None]
